FAERS Safety Report 24961237 (Version 2)
Quarter: 2025Q1

REPORT INFORMATION
  Report Type: Spontaneous
  Country: US (occurrence: US)
  Receive Date: 20250212
  Receipt Date: 20250321
  Transmission Date: 20250409
  Serious: No
  Sender: ROCHE
  Company Number: US-ROCHE-10000197910

PATIENT
  Sex: Male
  Weight: 24.94 kg

DRUGS (1)
  1. XOLAIR PFS [Suspect]
     Active Substance: OMALIZUMAB
     Indication: Urticaria
     Route: 058

REACTIONS (4)
  - Syringe issue [Unknown]
  - Procedural anxiety [Unknown]
  - Anxiety [Not Recovered/Not Resolved]
  - Off label use [Unknown]
